FAERS Safety Report 17495189 (Version 1)
Quarter: 2020Q1

REPORT INFORMATION
  Report Type: Spontaneous
  Country: US (occurrence: US)
  Receive Date: 20200223
  Receipt Date: 20200223
  Transmission Date: 20200409
  Serious: Yes (Hospitalization)
  Sender: FDA-Public Use
  Company Number: None

PATIENT
  Sex: Female
  Weight: 47 kg

DRUGS (2)
  1. PALBOCICLIB (PD-0332991) [Concomitant]
     Active Substance: PALBOCICLIB
  2. FEMARA [Suspect]
     Active Substance: LETROZOLE

REACTIONS (2)
  - Influenza [None]
  - Pneumonia bacterial [None]

NARRATIVE: CASE EVENT DATE: 20200209
